FAERS Safety Report 18962982 (Version 3)
Quarter: 2022Q2

REPORT INFORMATION
  Report Type: Spontaneous
  Country: CH (occurrence: CH)
  Receive Date: 20210303
  Receipt Date: 20220604
  Transmission Date: 20220721
  Serious: Yes (Hospitalization)
  Sender: FDA-Public Use
  Company Number: None

PATIENT
  Age: 88 Year
  Sex: Female

DRUGS (10)
  1. ATENOLOL\CHLORTHALIDONE [Interacting]
     Active Substance: ATENOLOL\CHLORTHALIDONE
     Dosage: INGREDIENT (ATENOLOL): 50MG; INGREDIENT (CHLORTALIDONE): 12.5MG
     Route: 048
     Dates: end: 20210207
  2. TILUR [Interacting]
     Active Substance: ACEMETACIN
     Route: 048
     Dates: end: 20210207
  3. ZALDIAR [Interacting]
     Active Substance: ACETAMINOPHEN\TRAMADOL HYDROCHLORIDE
     Dosage: INGREDIENT (PARACETAMOL): 325MG; INGREDIENT (TRAMADOL HYDROCHLORIDE): 37.5MG;
     Route: 048
     Dates: end: 20210207
  4. ZALDIAR [Interacting]
     Active Substance: ACETAMINOPHEN\TRAMADOL HYDROCHLORIDE
     Dosage: AS NECESSARY
     Dates: start: 20210210
  5. ASPIRIN [Concomitant]
     Active Substance: ASPIRIN
  6. LERCANIDIPINE HYDROCHLORIDE [Concomitant]
     Active Substance: LERCANIDIPINE HYDROCHLORIDE
  7. PANTOPRAZOLE [Concomitant]
     Active Substance: PANTOPRAZOLE
  8. MOVICOL [Concomitant]
     Active Substance: POLYETHYLENE GLYCOL 3350\POTASSIUM CHLORIDE\SODIUM BICARBONATE\SODIUM CHLORIDE
  9. CALCIUM\CHOLECALCIFEROL [Concomitant]
     Active Substance: CALCIUM\CHOLECALCIFEROL
  10. ACETAMINOPHEN [Concomitant]
     Active Substance: ACETAMINOPHEN

REACTIONS (4)
  - Hyponatraemia [Recovered/Resolved]
  - Pelvic fracture [Recovered/Resolved]
  - Fall [Recovered/Resolved]
  - Drug interaction [Recovered/Resolved]

NARRATIVE: CASE EVENT DATE: 20210101
